FAERS Safety Report 9744879 (Version 2)
Quarter: 2013Q4

REPORT INFORMATION
  Report Type: Report from Study
  Country: ZA (occurrence: ZA)
  Receive Date: 20131211
  Receipt Date: 20131211
  Transmission Date: 20140711
  Serious: Yes (Death, Hospitalization)
  Sender: FDA-Public Use
  Company Number: ZA-ROCHE-1274900

PATIENT
  Age: 63 Year
  Sex: Female

DRUGS (5)
  1. ACTEMRA [Suspect]
     Indication: RHEUMATOID ARTHRITIS
     Route: 042
     Dates: start: 20130126
  2. METHOTREXATE [Concomitant]
     Route: 058
  3. SALAZOPYRIN [Concomitant]
     Route: 048
  4. ARAVA [Concomitant]
     Route: 048
     Dates: start: 20130126
  5. PREDNISOLONE [Concomitant]
     Route: 048

REACTIONS (2)
  - Multi-organ failure [Fatal]
  - Pneumonia [Not Recovered/Not Resolved]
